FAERS Safety Report 9190470 (Version 2)
Quarter: 2013Q2

REPORT INFORMATION
  Report Type: Spontaneous
  Country: US (occurrence: None)
  Receive Date: 20120703
  Receipt Date: 20121031
  Transmission Date: 20140414
  Serious: Yes (Other)
  Sender: FDA-Public Use
  Company Number: PHEH2012US008786

PATIENT
  Age: 59 Year
  Sex: Female

DRUGS (8)
  1. GILENYA (FTY) CAPSULE, 0.5MG [Suspect]
     Indication: MULTIPLE SCLEROSIS
     Route: 048
     Dates: start: 20120209, end: 20120409
  2. TRIMPEX (TRIMETHOPRIM) [Concomitant]
  3. COLAZAL (BALSALAZIDE SODIUM) [Concomitant]
  4. SINGULAIR (MONTELUKAST) 10MG [Concomitant]
  5. VITAMIN D (ERGOCALCIFEROL) [Concomitant]
  6. BACLOFEN [Concomitant]
  7. ZANAFLEX (TIZANIDINE HYDROCHLORIDE) [Concomitant]
  8. COZAAR (LOSARTAN POTASSIUM) (50 MILLIGRAM, TABLETS) (LOSARTAN POTASSIUM) [Concomitant]

REACTIONS (2)
  - Macular oedema [None]
  - Visual impairment [None]
